FAERS Safety Report 6818438-1 (Version None)
Quarter: 2010Q3

REPORT INFORMATION
  Report Type: 
  Country: None (occurrence: None)
  Receive Date: 20100706
  Receipt Date: 20080709
  Transmission Date: 20110219
  Serious: No
  Sender: FDA-Public Use
  Company Number: US-PFIZER INC-2008034586

PATIENT
  Sex: Female

DRUGS (5)
  1. ZITHROMAX (CAPS) [Suspect]
     Indication: INFECTION
     Route: 048
  2. DRUG, UNSPECIFIED [Suspect]
  3. AVAPRO [Suspect]
     Indication: HYPERTENSION
     Route: 048
  4. RESTORIL [Suspect]
     Indication: INSOMNIA
     Route: 048
  5. IMITREX [Suspect]
     Indication: MIGRAINE
     Route: 048

REACTIONS (1)
  - DRUG SCREEN FALSE POSITIVE [None]
